FAERS Safety Report 8109427-8 (Version None)
Quarter: 2012Q1

REPORT INFORMATION
  Report Type: 
  Country: None (occurrence: None)
  Receive Date: 20120202
  Receipt Date: 20120118
  Transmission Date: 20120608
  Serious: Yes (Other)
  Sender: FDA-Public Use
  Company Number: JP-PFIZER INC-2010140675

PATIENT
  Age: 79 Year
  Sex: Female

DRUGS (2)
  1. ERLOTINIB HYDROCHLORIDE [Suspect]
     Indication: LUNG NEOPLASM MALIGNANT
     Dosage: 150 MG, 1X/DAY FOR 7 DAYS
     Route: 048
  2. CELECOXIB [Suspect]
     Indication: PAIN MANAGEMENT
     Dosage: 400 MG, 1X/DAY FOR 7 DAYS
     Route: 048

REACTIONS (2)
  - OFF LABEL USE [None]
  - ERYTHEMA MULTIFORME [None]
